FAERS Safety Report 5571865-5 (Version None)
Quarter: 2007Q4

REPORT INFORMATION
  Report Type: 
  Country: None (occurrence: None)
  Receive Date: 20071221
  Receipt Date: 20071212
  Transmission Date: 20080405
  Serious: Yes (Other)
  Sender: FDA-Public Use
  Company Number: GB-BAYER-200711410BNE

PATIENT
  Age: 62 Year
  Sex: Male

DRUGS (1)
  1. BETASERON [Suspect]
     Indication: DRUG USE FOR UNKNOWN INDICATION
     Dates: start: 20051001

REACTIONS (4)
  - COLORECTAL CANCER [None]
  - LIVER FUNCTION TEST ABNORMAL [None]
  - METASTASES TO LIVER [None]
  - METASTASES TO LUNG [None]
